FAERS Safety Report 4808884-X (Version None)
Quarter: 2005Q4

REPORT INFORMATION
  Report Type: 
  Country: None (occurrence: None)
  Receive Date: 20051025
  Receipt Date: 20051017
  Transmission Date: 20060501
  Serious: Yes (Other)
  Sender: FDA-Public Use
  Company Number: JP-JNJFOC-20051004315

PATIENT
  Age: 53 Year
  Sex: Female

DRUGS (1)
  1. ITIZOLE [Suspect]
     Indication: NAIL TINEA
     Route: 048
     Dates: start: 20050727, end: 20050802

REACTIONS (1)
  - CLOSTRIDIUM COLITIS [None]
